FAERS Safety Report 8786336 (Version 1)
Quarter: 2012Q4

REPORT INFORMATION
  Report Type: 
  Country: DK (occurrence: CH)
  Receive Date: 20120914
  Receipt Date: 20121116
  Transmission Date: 20130627
  Serious: Yes (Hospitalization)
  Sender: FDA-Public Use
  Company Number: CH-FRI-1000038538

PATIENT
  Sex: Female
  Weight: 60.4 kg

DRUGS (13)
  1. ESCITALOPRAM [Suspect]
     Indication: DEPRESSION
     Dosage: 15 mg
     Route: 048
  2. TILUR [Suspect]
     Indication: PAIN
     Dosage: 1 DF
     Route: 048
     Dates: start: 20120624, end: 20120628
  3. QUETIAPINE [Suspect]
     Indication: DEPRESSION
     Dosage: 50 mg
     Route: 048
  4. NOVALGIN [Concomitant]
     Indication: PAIN
     Dosage: 1000 mg
     Route: 048
     Dates: end: 20120628
  5. CALCIMAGON D3 [Concomitant]
     Dosage: 2 DF
     Route: 048
  6. OMEZOL [Concomitant]
     Dosage: 80 mg
     Route: 048
  7. LITHIUM ASPARTATE [Concomitant]
     Indication: DEPRESSION
     Dosage: 1 DF
     Route: 048
  8. NEURONTIN [Concomitant]
     Dosage: 900 mg
     Route: 048
  9. REQUIP [Concomitant]
     Indication: PARKINSON^S DISEASE
     Dosage: 2 mg
     Route: 048
     Dates: start: 201205
  10. MADOPAR [Concomitant]
     Indication: PARKINSON^S DISEASE
     Dosage: 750 mg
     Route: 048
  11. DETRUSITOL [Concomitant]
     Dosage: 2 mg
     Route: 048
  12. MOTILIUM [Concomitant]
     Dosage: 3 DF
     Route: 048
  13. EUTHYROX [Concomitant]
     Indication: HYPOTHYROIDISM
     Dosage: 25 mg
     Route: 048

REACTIONS (4)
  - Colitis [Recovering/Resolving]
  - Intestinal ulcer [Recovering/Resolving]
  - Haemorrhagic anaemia [Recovered/Resolved]
  - Haematemesis [Recovered/Resolved]
